FAERS Safety Report 8461986-1 (Version None)
Quarter: 2012Q2

REPORT INFORMATION
  Report Type: 
  Country: None (occurrence: None)
  Receive Date: 20120323
  Receipt Date: 20111024
  Transmission Date: 20120825
  Serious: Yes (Hospitalization)
  Sender: FDA-Public Use
  Company Number: 163-21880-11100455

PATIENT
  Age: 61 Year
  Sex: Male

DRUGS (11)
  1. REVLIMID [Suspect]
     Indication: MULTIPLE MYELOMA
     Dosage: 25 MG, DAILY FOR 14 DAYS, PO
     Route: 048
     Dates: start: 20110919
  2. ZOMETA [Concomitant]
  3. TRILIPIX [Concomitant]
  4. LEXAPRO [Concomitant]
  5. VELCADE [Concomitant]
  6. TRAZODONE HCL [Concomitant]
  7. NEXIUM [Concomitant]
  8. DEXAMETHASONE [Concomitant]
  9. BENICAR [Concomitant]
  10. CRESTOR [Concomitant]
  11. HYDROCHLOROTHIAZIDE [Concomitant]

REACTIONS (2)
  - RENAL FAILURE ACUTE [None]
  - ANAEMIA [None]
